FAERS Safety Report 5054307-8 (Version None)
Quarter: 2006Q3

REPORT INFORMATION
  Report Type: 
  Country: None (occurrence: None)
  Receive Date: 20060713
  Receipt Date: 20060630
  Transmission Date: 20061208
  Serious: Yes (Hospitalization, Disabling, Other)
  Sender: FDA-Public Use
  Company Number: 2003-07-1839

PATIENT
  Age: 47 Year
  Sex: Female
  Weight: 90.2658 kg

DRUGS (8)
  1. PEG-INTRON [Suspect]
     Indication: HEPATITIS C
     Dosage: 150 MCG QWK SUBCUTANEOUS
     Route: 058
     Dates: start: 20030426, end: 20030717
  2. REBETOL [Suspect]
     Indication: HEPATITIS C
     Dosage: 1200 MG QD ORAL
     Route: 048
     Dates: start: 20030426, end: 20030717
  3. HYDROCHLOROTHIAZIDE [Concomitant]
  4. XANAX [Concomitant]
  5. ESTRADIOL [Concomitant]
  6. IBUPROFEN [Concomitant]
  7. LOPRESSOR [Concomitant]
  8. PREDNISOLONE [Concomitant]

REACTIONS (15)
  - ABDOMINAL PAIN [None]
  - ANAEMIA [None]
  - ARTHRALGIA [None]
  - ARTHRITIS [None]
  - DEHYDRATION [None]
  - DEPRESSION [None]
  - DIABETES MELLITUS [None]
  - DIARRHOEA [None]
  - HYPOTENSION [None]
  - MIGRAINE [None]
  - MYALGIA [None]
  - NAUSEA [None]
  - PAIN [None]
  - RASH [None]
  - VOMITING [None]
